FAERS Safety Report 6889636-6 (Version None)
Quarter: 2010Q3

REPORT INFORMATION
  Report Type: 
  Country: None (occurrence: None)
  Receive Date: 20100730
  Receipt Date: 20080407
  Transmission Date: 20110219
  Serious: No
  Sender: FDA-Public Use
  Company Number: US-PFIZER INC-2008032443

PATIENT
  Sex: Female
  Weight: 50.909 kg

DRUGS (4)
  1. LIPITOR [Suspect]
     Indication: TRANSIENT ISCHAEMIC ATTACK
     Route: 048
     Dates: start: 20080328
  2. KLOR-CON [Concomitant]
  3. HYDROCHLOROTHIAZIDE [Concomitant]
  4. PLAVIX [Concomitant]

REACTIONS (3)
  - BURNING SENSATION [None]
  - ERYTHEMA [None]
  - PRURITUS [None]
